FAERS Safety Report 17310601 (Version 1)
Quarter: 2020Q1

REPORT INFORMATION
  Report Type: Spontaneous
  Country: US (occurrence: US)
  Receive Date: 20200123
  Receipt Date: 20200123
  Transmission Date: 20200409
  Serious: No
  Sender: FDA-Public Use
  Company Number: US-ROCHE-2441175

PATIENT
  Age: 50 Year
  Sex: Female

DRUGS (3)
  1. RITUXIMAB. [Suspect]
     Active Substance: RITUXIMAB
     Indication: MULTIPLE SCLEROSIS
     Route: 041
  2. OCRELIZUMAB. [Concomitant]
     Active Substance: OCRELIZUMAB
     Route: 065
  3. DACLIZUMAB [Concomitant]
     Active Substance: DACLIZUMAB

REACTIONS (3)
  - Off label use [Unknown]
  - Serum sickness [Recovering/Resolving]
  - Intentional product use issue [Unknown]
